FAERS Safety Report 5443520-3 (Version None)
Quarter: 2007Q3

REPORT INFORMATION
  Report Type: 
  Country: None (occurrence: None)
  Receive Date: 20070730
  Receipt Date: 20070322
  Transmission Date: 20080115
  Serious: Yes (Life-Threatening, Hospitalization)
  Sender: FDA-Public Use
  Company Number: 237995

PATIENT
  Age: 82 Year
  Sex: Female

DRUGS (5)
  1. RITUXAN [Suspect]
     Indication: CHRONIC LYMPHOCYTIC LEUKAEMIA
     Dosage: 800  MG, Q4W, INTRAVENOUS
     Route: 042
     Dates: start: 20070102, end: 20070130
  2. FLUDARA [Suspect]
     Indication: DRUG USE FOR UNKNOWN INDICATION
     Dosage: 33 MG
  3. CYTOXAN [Suspect]
     Indication: DRUG USE FOR UNKNOWN INDICATION
     Dosage: 800 MG
  4. BENADRYL [Concomitant]
  5. TYLENOL (CAPLET) [Concomitant]

REACTIONS (2)
  - ANAPHYLACTIC REACTION [None]
  - RESPIRATORY ARREST [None]
